FAERS Safety Report 21761173 (Version 1)
Quarter: 2022Q4

REPORT INFORMATION
  Report Type: Report from Study
  Country: CA (occurrence: CA)
  Receive Date: 20221221
  Receipt Date: 20221221
  Transmission Date: 20230112
  Serious: Yes (Other)
  Sender: FDA-Public Use
  Company Number: CA-JNJFOC-20220317365

PATIENT
  Age: 16 Year
  Sex: Female
  Weight: 58.6 kg

DRUGS (2)
  1. STELARA [Suspect]
     Active Substance: USTEKINUMAB
     Indication: Colitis ulcerative
     Dosage: THE PATIENT RECEIVED FIRST STELARA INFUSION ON 11-MAR-2022 OF 260 MG.
     Route: 042
     Dates: start: 20220311
  2. STELARA [Suspect]
     Active Substance: USTEKINUMAB
     Dosage: ON 15-DEC-2022, PATIENT RECEIVED 6TH USTEKINUMAB INJECTION OF 90 MG AND PARTIAL MAYO WAS COMPLETED
     Route: 058
     Dates: start: 2022

REACTIONS (7)
  - Haematochezia [Not Recovered/Not Resolved]
  - Vision blurred [Not Recovered/Not Resolved]
  - Arthralgia [Unknown]
  - Nausea [Unknown]
  - Dizziness [Not Recovered/Not Resolved]
  - Off label use [Unknown]
  - Product use issue [Unknown]

NARRATIVE: CASE EVENT DATE: 20220101
